FAERS Safety Report 8610506-7 (Version None)
Quarter: 2012Q3

REPORT INFORMATION
  Report Type: 
  Country: None (occurrence: None)
  Receive Date: 20120423
  Receipt Date: 20100409
  Transmission Date: 20120928
  Serious: Yes (Other)
  Sender: FDA-Public Use
  Company Number: PHHY2010US21340

PATIENT
  Age: 63 Year
  Sex: Female

DRUGS (1)
  1. FEMARA [Suspect]
     Dosage: 2.5 MG, QD, ORAL
     Route: 048

REACTIONS (7)
  - CATARACT [None]
  - DRY EYE [None]
  - HUNGER [None]
  - THERAPY REGIMEN CHANGED [None]
  - ANXIETY [None]
  - THIRST [None]
  - TEETH BRITTLE [None]
